FAERS Safety Report 20377785 (Version 1)
Quarter: 2022Q1

REPORT INFORMATION
  Report Type: Spontaneous
  Country: US (occurrence: US)
  Receive Date: 20220126
  Receipt Date: 20220126
  Transmission Date: 20220423
  Serious: No
  Sender: FDA-Public Use
  Company Number: US-IGSA-BIG0017062

PATIENT
  Age: 3 Year
  Sex: Male
  Weight: 13.152 kg

DRUGS (2)
  1. XEMBIFY [Suspect]
     Active Substance: HUMAN IMMUNOGLOBULIN G
     Indication: Hypogammaglobulinaemia
     Dosage: 2 GRAM, Q.WK.
     Route: 058
     Dates: start: 202103, end: 20211222
  2. TYLENOL [Concomitant]
     Active Substance: ACETAMINOPHEN
     Dosage: 5 MILLIGRAM

REACTIONS (3)
  - Injection site pain [Unknown]
  - Injection site nodule [Unknown]
  - Injection site bruising [Unknown]

NARRATIVE: CASE EVENT DATE: 20210301
